FAERS Safety Report 8976634 (Version 1)
Quarter: 2012Q4

REPORT INFORMATION
  Report Type: 
  Country: CA (occurrence: CA)
  Receive Date: 20121220
  Receipt Date: 20121220
  Transmission Date: 20130627
  Serious: Yes (Hospitalization)
  Sender: FDA-Public Use
  Company Number: CA-ELI_LILLY_AND_COMPANY-CA201212004288

PATIENT
  Age: 60 Year
  Sex: Male

DRUGS (4)
  1. FORTEO [Suspect]
     Indication: OSTEOPOROSIS
     Dosage: 20 ug, qd
     Route: 058
     Dates: start: 20110622
  2. CALCIUM [Concomitant]
     Dosage: UNK, unknown
  3. VITAMIN D [Concomitant]
     Dosage: UNK, unknown
  4. PERCOCET [Concomitant]
     Dosage: UNK, unknown

REACTIONS (1)
  - Myocardial infarction [Recovered/Resolved]
